FAERS Safety Report 5511921-0 (Version None)
Quarter: 2007Q4

REPORT INFORMATION
  Report Type: 
  Country: None (occurrence: None)
  Receive Date: 20071109
  Receipt Date: 20071030
  Transmission Date: 20080405
  Serious: Yes (Other)
  Sender: FDA-Public Use
  Company Number: SE-PFIZER INC-2007091893

PATIENT
  Sex: Male

DRUGS (3)
  1. LYRICA [Suspect]
  2. CONCERTA [Concomitant]
  3. EFFEXOR [Concomitant]

REACTIONS (4)
  - INTENTIONAL DRUG MISUSE [None]
  - NAUSEA [None]
  - PANIC ATTACK [None]
  - TREMOR [None]
